FAERS Safety Report 7477746-4 (Version None)
Quarter: 2011Q2

REPORT INFORMATION
  Report Type: 
  Country: None (occurrence: None)
  Receive Date: 20110513
  Receipt Date: 20110502
  Transmission Date: 20111010
  Serious: Yes (Hospitalization)
  Sender: FDA-Public Use
  Company Number: FR-BAYER-2011-037806

PATIENT
  Age: 84 Year
  Sex: Female

DRUGS (8)
  1. KETOPROFEN [Suspect]
     Dosage: UNK
     Route: 048
     Dates: end: 20101209
  2. AUGMENTIN [Suspect]
     Indication: URINARY TRACT INFECTION
     Dosage: 1 G, BID
     Route: 048
     Dates: start: 20101207, end: 20101209
  3. FUROSEMIDE [Concomitant]
     Dosage: UNK
     Route: 048
  4. CANDESARTAN CILEXETIL [Concomitant]
     Indication: HYPERTENSION
     Dosage: 12 MG, QD
     Route: 048
  5. RABEPRAZOLE SODIUM [Concomitant]
     Dosage: UNK
     Route: 048
  6. CIPROFLOXACIN [Suspect]
     Indication: URINARY TRACT INFECTION
     Dosage: 500 MG, BID
     Route: 048
     Dates: start: 20101207, end: 20101207
  7. ASPIRIN [Concomitant]
     Dosage: 1 DF, QD
     Route: 048
  8. LEVOTHYROXINE SODIUM [Concomitant]
     Indication: HYPOTHYROIDISM
     Dosage: 1 DF, QD
     Route: 048

REACTIONS (4)
  - DISCOMFORT [None]
  - LIP OEDEMA [None]
  - URTICARIA [None]
  - PYREXIA [None]
